FAERS Safety Report 4596594-6 (Version None)
Quarter: 2005Q1

REPORT INFORMATION
  Report Type: 
  Country: None (occurrence: None)
  Receive Date: 20050228
  Receipt Date: 20050211
  Transmission Date: 20050727
  Serious: Yes (Life-Threatening)
  Sender: FDA-Public Use
  Company Number: 10263

PATIENT
  Age: 69 Year
  Sex: Female

DRUGS (7)
  1. CARBOPLATIN [Suspect]
     Indication: SMALL CELL LUNG CANCER STAGE UNSPECIFIED
     Dosage: IV
     Route: 042
     Dates: start: 20041202, end: 20041222
  2. ATENOLOL [Concomitant]
  3. QUININE SULPHATE [Concomitant]
  4. MORPHINE [Concomitant]
  5. ONDANSETRON [Concomitant]
  6. DEXAMETHASONE [Concomitant]
  7. GABAPENTIN [Concomitant]

REACTIONS (1)
  - TOXIC EPIDERMAL NECROLYSIS [None]
